FAERS Safety Report 17968695 (Version 1)
Quarter: 2020Q3

REPORT INFORMATION
  Report Type: Spontaneous
  Country: US (occurrence: US)
  Receive Date: 20200701
  Receipt Date: 20200701
  Transmission Date: 20201103
  Serious: Yes (Hospitalization)
  Sender: FDA-Public Use
  Company Number: None

PATIENT
  Age: 97 Year
  Sex: Male
  Weight: 76.3 kg

DRUGS (4)
  1. BUMETANIDE 1 MG DAILY [Concomitant]
     Dates: start: 20200612
  2. ZOLOFT 50 MG DAILY [Concomitant]
     Dates: start: 20200612
  3. APIXABAN [Suspect]
     Active Substance: APIXABAN
     Indication: ATRIAL FIBRILLATION
     Route: 048
     Dates: start: 20200610, end: 20200629
  4. PROTONIX 40 MG DAILY [Concomitant]
     Dates: start: 20200612

REACTIONS (5)
  - Fall [None]
  - Faeces discoloured [None]
  - Hip fracture [None]
  - Haemoglobin decreased [None]
  - Blood creatinine increased [None]

NARRATIVE: CASE EVENT DATE: 20200623
